FAERS Safety Report 15070336 (Version 1)
Quarter: 2018Q2

REPORT INFORMATION
  Report Type: Spontaneous
  Country: JP (occurrence: JP)
  Receive Date: 20180626
  Receipt Date: 20180626
  Transmission Date: 20180711
  Serious: Yes (Hospitalization, Other)
  Sender: FDA-Public Use
  Company Number: JP-BAUSCH-BL-2018-017739

PATIENT
  Age: 6 Year
  Sex: Male

DRUGS (5)
  1. GAMMA GLOBULIN [Concomitant]
     Active Substance: IMMUNE GLOBULIN NOS
     Indication: BRAIN OEDEMA
  2. CEFOTAXIME [Concomitant]
     Active Substance: CEFOTAXIME SODIUM
     Indication: MENINGITIS BACTERIAL
  3. D-MANNITOL [Concomitant]
     Active Substance: MANNITOL
     Indication: MENINGITIS BACTERIAL
  4. DEXAMETHASONE. [Suspect]
     Active Substance: DEXAMETHASONE
     Indication: MENINGITIS BACTERIAL
     Route: 065
  5. MEROPENEM. [Suspect]
     Active Substance: MEROPENEM
     Indication: MENINGITIS BACTERIAL
     Route: 065

REACTIONS (4)
  - VIth nerve paralysis [Recovered/Resolved]
  - Infection [Recovering/Resolving]
  - Cardiac failure congestive [Recovering/Resolving]
  - Stress cardiomyopathy [Recovering/Resolving]
